FAERS Safety Report 4761989-4 (Version None)
Quarter: 2005Q3

REPORT INFORMATION
  Report Type: 
  Country: None (occurrence: None)
  Receive Date: 20050906
  Receipt Date: 20050825
  Transmission Date: 20060218
  Serious: Yes (Hospitalization)
  Sender: FDA-Public Use
  Company Number: NO-MERCK-0508NOR00023

PATIENT
  Age: 57 Year
  Sex: Male

DRUGS (3)
  1. HYDROCHLOROTHIAZIDE AND LOSARTAN POTASSIUM [Concomitant]
     Indication: HYPERTENSION
     Route: 065
  2. AMLODIPINE BESYLATE [Concomitant]
     Route: 065
  3. VIOXX [Suspect]
     Indication: OSTEOARTHRITIS
     Route: 048
     Dates: start: 20010901, end: 20041002

REACTIONS (7)
  - ANGINA PECTORIS [None]
  - ASTHMA [None]
  - BLOOD CREATINE PHOSPHOKINASE INCREASED [None]
  - BLOOD THYROID STIMULATING HORMONE INCREASED [None]
  - CORONARY ARTERY DISEASE [None]
  - PNEUMONIA [None]
  - VENTRICULAR HYPERTROPHY [None]
